FAERS Safety Report 9341782 (Version 1)
Quarter: 2013Q2

REPORT INFORMATION
  Report Type: Report from Study
  Country: FR (occurrence: FR)
  Receive Date: 20130611
  Receipt Date: 20130611
  Transmission Date: 20140414
  Serious: Yes (Death, Hospitalization)
  Sender: FDA-Public Use
  Company Number: FR-ROCHE-680586

PATIENT
  Age: 67 Year
  Sex: Male

DRUGS (11)
  1. RITUXIMAB [Suspect]
     Indication: B-CELL LYMPHOMA
     Dosage: FREQUENCY: CYCLE
     Route: 042
     Dates: start: 20071019, end: 20090928
  2. FLUDARABINE [Concomitant]
     Indication: B-CELL LYMPHOMA
     Dosage: FIRST CYCLE
     Route: 065
  3. FLUDARABINE [Concomitant]
     Dosage: SECOND CYCLE
     Route: 065
  4. FLUDARABINE [Concomitant]
     Dosage: THIRD CYCLE
     Route: 065
  5. FLUDARABINE [Concomitant]
     Dosage: FOURTH CYCLE
     Route: 065
  6. BACTRIM [Concomitant]
     Indication: ANTIFUNGAL PROPHYLAXIS
  7. ZELITREX [Concomitant]
     Indication: ANTIVIRAL PROPHYLAXIS
  8. PERFALGAN [Concomitant]
  9. POLARAMINE [Concomitant]
  10. SOLU-MEDROL [Concomitant]
  11. NORSET [Concomitant]

REACTIONS (1)
  - Progressive multifocal leukoencephalopathy [Fatal]
